FAERS Safety Report 13909022 (Version 1)
Quarter: 2017Q3

REPORT INFORMATION
  Report Type: Spontaneous
  Country: US (occurrence: US)
  Receive Date: 20170828
  Receipt Date: 20170828
  Transmission Date: 20171127
  Serious: No
  Sender: FDA-Public Use
  Company Number: US-ENDO PHARMACEUTICALS INC-2016-005362

PATIENT
  Sex: Male

DRUGS (1)
  1. PREDNISONE TABLETS 5MG [Suspect]
     Active Substance: PREDNISONE
     Indication: GOUT
     Route: 065

REACTIONS (2)
  - Feeling hot [Unknown]
  - Hyperhidrosis [Unknown]
